FAERS Safety Report 8399259-8 (Version None)
Quarter: 2012Q2

REPORT INFORMATION
  Report Type: 
  Country: None (occurrence: None)
  Receive Date: 20120531
  Receipt Date: 20120529
  Transmission Date: 20120825
  Serious: Yes (Other)
  Sender: FDA-Public Use
  Company Number: GB-GLAXOSMITHKLINE-B0787224A

PATIENT
  Age: 68 Year
  Sex: Female

DRUGS (8)
  1. ASPIRIN [Concomitant]
     Dosage: 150MG PER DAY
  2. ADCAL [Concomitant]
  3. REQUIP XL [Suspect]
     Indication: PARKINSON'S DISEASE
     Route: 065
     Dates: start: 20100101
  4. SIMVASTATIN [Concomitant]
  5. SINEMET CR [Concomitant]
  6. AZILECT [Concomitant]
     Dosage: 1MG PER DAY
  7. SINEMET [Concomitant]
  8. LANSOPRAZOLE [Concomitant]

REACTIONS (4)
  - PARKINSONISM [None]
  - MEDICATION RESIDUE [None]
  - OFF LABEL USE [None]
  - INCORRECT DOSE ADMINISTERED [None]
